FAERS Safety Report 9010625 (Version 1)
Quarter: 2013Q1

REPORT INFORMATION
  Report Type: Spontaneous
  Country: US (occurrence: US)
  Receive Date: 20130111
  Receipt Date: 20130111
  Transmission Date: 20140127
  Serious: Yes (Hospitalization, Other)
  Sender: FDA-Public Use
  Company Number: US-OPTIMER-20130002

PATIENT
  Age: 21 Year
  Sex: Female

DRUGS (9)
  1. DIFICID [Suspect]
     Indication: CLOSTRIDIUM DIFFICILE COLITIS
     Dosage: UNK
  2. CEFEPIME [Concomitant]
     Indication: NEUTROPENIA
     Dosage: 2 G, Q8H
     Route: 042
  3. CEFEPIME [Concomitant]
     Indication: PYREXIA
  4. ACYCLOVIR [Concomitant]
     Indication: PROPHYLAXIS
  5. FLUCONAZOLE [Concomitant]
     Indication: PROPHYLAXIS
  6. METRONIDAZOLE [Concomitant]
     Indication: CLOSTRIDIAL INFECTION
     Dosage: 500 MG, Q8H
     Route: 042
  7. VANCOMYCIN [Concomitant]
     Indication: CLOSTRIDIAL INFECTION
     Dosage: 250 MG, Q6H
     Route: 048
  8. VANCOMYCIN [Concomitant]
     Dosage: 500 MG/ 100 ML NORMAL SALINE, Q6H
     Route: 054
  9. MEROPENEM [Concomitant]
     Indication: PRODUCT USED FOR UNKNOWN INDICATION
     Dosage: 500 MG, Q6H
     Route: 042

REACTIONS (8)
  - Pseudomembranous colitis [Recovered/Resolved]
  - Clostridium difficile colitis [Recovered/Resolved]
  - Peritonitis [Recovered/Resolved]
  - Abdominal rebound tenderness [Recovered/Resolved]
  - Abdominal rigidity [Recovered/Resolved]
  - Abdominal distension [Recovered/Resolved]
  - Gastrointestinal sounds abnormal [Recovered/Resolved]
  - Drug ineffective [Recovered/Resolved]
